FAERS Safety Report 16277375 (Version 1)
Quarter: 2019Q2

REPORT INFORMATION
  Report Type: Spontaneous
  Country: US (occurrence: US)
  Receive Date: 20190506
  Receipt Date: 20190506
  Transmission Date: 20190711
  Serious: No
  Sender: FDA-Public Use
  Company Number: US-ELI_LILLY_AND_COMPANY-US201904011467

PATIENT
  Sex: Female

DRUGS (1)
  1. TALTZ [Suspect]
     Active Substance: IXEKIZUMAB
     Indication: PSORIASIS
     Dosage: 160 MG, UNKNOWN
     Route: 058

REACTIONS (5)
  - Injection site discomfort [Recovering/Resolving]
  - Prescribed overdose [Unknown]
  - Injection site erythema [Recovering/Resolving]
  - Injection site rash [Unknown]
  - Injection site pruritus [Recovering/Resolving]
